FAERS Safety Report 14974327 (Version 2)
Quarter: 2018Q3

REPORT INFORMATION
  Report Type: Spontaneous
  Country: US (occurrence: US)
  Receive Date: 20180605
  Receipt Date: 20180803
  Transmission Date: 20181010
  Serious: No
  Sender: FDA-Public Use
  Company Number: US-LEO PHARMA-309141

PATIENT
  Sex: Female

DRUGS (2)
  1. PICATO [Suspect]
     Active Substance: INGENOL MEBUTATE
     Indication: ACTINIC KERATOSIS
     Route: 061
     Dates: start: 20180522, end: 20180524
  2. PICATO [Suspect]
     Active Substance: INGENOL MEBUTATE
     Indication: ACTINIC CHEILITIS
     Dosage: ?MAR?2017, PICATO 0.015% ON FACE FOR AK
     Dates: start: 201703

REACTIONS (6)
  - Application site exfoliation [Not Recovered/Not Resolved]
  - Application site erythema [Recovered/Resolved]
  - Application site scab [Recovered/Resolved]
  - Application site papules [Recovered/Resolved]
  - Product use in unapproved indication [Unknown]
  - Drug ineffective for unapproved indication [Unknown]
